FAERS Safety Report 4971641-8 (Version None)
Quarter: 2006Q2

REPORT INFORMATION
  Report Type: 
  Country: None (occurrence: None)
  Receive Date: 20060406
  Receipt Date: 20060327
  Transmission Date: 20061013
  Serious: Yes (Hospitalization)
  Sender: FDA-Public Use
  Company Number: 2006033115

PATIENT
  Age: 19 Year
  Sex: Female

DRUGS (2)
  1. ALPRAZOLAM [Suspect]
     Indication: ANXIETY
     Dosage: 1.2 MG (0.4 MG, 3 IN 1 D)
  2. ALL OTHER THERAPEUTIC PRODUCTS [Concomitant]

REACTIONS (4)
  - ABASIA [None]
  - INTENTIONAL OVERDOSE [None]
  - MENTAL IMPAIRMENT [None]
  - SOMNOLENCE [None]
